FAERS Safety Report 18971945 (Version 1)
Quarter: 2021Q1

REPORT INFORMATION
  Report Type: Other
  Country: NZ (occurrence: NZ)
  Receive Date: 20210305
  Receipt Date: 20210305
  Transmission Date: 20210420
  Serious: Yes (Other)
  Sender: FDA-Public Use
  Company Number: NZ-ROCHE-2778371

PATIENT
  Age: 45 Year
  Sex: Female

DRUGS (2)
  1. OLAPARIB. [Concomitant]
     Active Substance: OLAPARIB
     Indication: BREAST CANCER METASTATIC
     Route: 065
  2. ATEZOLIZUMAB. [Suspect]
     Active Substance: ATEZOLIZUMAB
     Indication: BREAST CANCER METASTATIC
     Route: 065

REACTIONS (1)
  - Aplasia pure red cell [Unknown]
